FAERS Safety Report 9723160 (Version 2)
Quarter: 2013Q4

REPORT INFORMATION
  Report Type: Spontaneous
  Country: FR (occurrence: None)
  Receive Date: 20131126
  Receipt Date: 20131127
  Transmission Date: 20140711
  Serious: Yes (Hospitalization)
  Sender: FDA-Public Use
  Company Number: SYM-2013-12751

PATIENT
  Age: 73 Year
  Sex: Male

DRUGS (7)
  1. 5 FU [Suspect]
     Indication: COLORECTAL CANCER METASTATIC
     Dosage: 500 MG, EVERY OTHER WEEK
     Route: 040
     Dates: start: 20130521, end: 20130521
  2. AFLIBERCEPT (AFLIBERCEPT) (SOLUTION FOR INFUSION) (AFLIBERCEPT) [Suspect]
     Indication: COLORECTAL CANCER METASTATIC
     Dosage: 300 MG EVERY OTHER WEEK
     Route: 041
     Dates: start: 20130521, end: 20130521
  3. IRINOTECAN (IRINOTECAN) (SOLUTION FOR INFUSION) (IRINOTECAN) [Suspect]
     Indication: COLORECTAL CANCER METASTATIC
     Dosage: 300 MG, EVERY OTHER WEEK
     Route: 041
     Dates: start: 20130521, end: 20130521
  4. LEUCOVORIN (FOLINIC ACID) (SOLUTION FOR INFUSION) (FOLINIC ACID) [Suspect]
     Indication: COLORECTAL CANCER METASTATIC
     Dosage: 370 MG, EVERY OTHER WEEK
     Route: 041
     Dates: start: 20130521, end: 20130521
  5. LOPERAMIDE  (LOPERAMIDE) (LOPERAMIDE) [Concomitant]
  6. BETA BLOCKING AGENTS (BETA BLOCKING AGENTS) [Concomitant]
  7. IMODIUM (LOPERAMIDE HYDROCHLORIDE) (LOPERAMIDE HYDROCHLORIDE) [Concomitant]

REACTIONS (8)
  - Device related infection [None]
  - Cholestasis [None]
  - Pyrexia [None]
  - Jaundice cholestatic [None]
  - Cholangitis [None]
  - Nausea [None]
  - Vomiting [None]
  - Infection [None]
